FAERS Safety Report 9107288 (Version 1)
Quarter: 2013Q1

REPORT INFORMATION
  Report Type: Report from Study
  Country: US (occurrence: US)
  Receive Date: 20130221
  Receipt Date: 20130221
  Transmission Date: 20140127
  Serious: Yes (Other)
  Sender: FDA-Public Use
  Company Number: US-BRISTOL-MYERS SQUIBB COMPANY-17378548

PATIENT
  Age: 75 Year
  Sex: Male
  Weight: 80.2 kg

DRUGS (1)
  1. IPILIMUMAB [Suspect]
     Indication: MALIGNANT MELANOMA
     Dosage: LAST COURSE:14JAN13
     Route: 042
     Dates: start: 20121203

REACTIONS (1)
  - Hyponatraemia [Not Recovered/Not Resolved]
